FAERS Safety Report 12615248 (Version 1)
Quarter: 2016Q3

REPORT INFORMATION
  Report Type: Spontaneous
  Country: RS (occurrence: RS)
  Receive Date: 20160802
  Receipt Date: 20160802
  Transmission Date: 20161109
  Serious: Yes (Hospitalization)
  Sender: FDA-Public Use
  Company Number: RS-MYLANLABS-2016M1031474

PATIENT

DRUGS (15)
  1. MITOXANTRONE [Suspect]
     Active Substance: MITOXANTRONE HYDROCHLORIDE
     Indication: ACUTE MYELOID LEUKAEMIA
     Dosage: 15 MG FROM DAY 1-4 OF THE CYCLE
     Route: 042
     Dates: start: 200411
  2. CYTARABINE. [Concomitant]
     Active Substance: CYTARABINE
     Indication: ACUTE MYELOID LEUKAEMIA
     Dosage: 2X140 MG FROM DAY 1 TO DAY 8 OF THE CYCLE
     Route: 040
  3. CYTARABINE. [Concomitant]
     Active Substance: CYTARABINE
     Dosage: 3G FROM DAY 1 TO DAY 3 OF THE CYCLE
     Route: 042
     Dates: start: 200411
  4. AMSACRINE [Concomitant]
     Active Substance: AMSACRINE
     Indication: ACUTE MYELOID LEUKAEMIA
     Dosage: 15 MG FROM DAY 1 TO DAY 5 OF THE CYCLE
     Route: 042
     Dates: start: 200409
  5. DOBUTAMINE [Concomitant]
     Active Substance: DOBUTAMINE\DOBUTAMINE HYDROCHLORIDE
     Route: 065
  6. BROMOCRIPTINE [Suspect]
     Active Substance: BROMOCRIPTINE
     Route: 065
  7. VORICONAZOLE MYLAN [Suspect]
     Active Substance: VORICONAZOLE
     Indication: HEPATOSPLENIC CANDIDIASIS
     Route: 065
  8. DOXORUBICIN [Suspect]
     Active Substance: DOXORUBICIN
     Indication: ACUTE MYELOID LEUKAEMIA
     Dosage: 60 MG ON DAY 1 OF THE CYCLE
     Route: 042
  9. AMPHOTERICIN B. [Suspect]
     Active Substance: AMPHOTERICIN B
     Indication: HEPATOSPLENIC CANDIDIASIS
     Route: 065
  10. ETOPOSIDE. [Concomitant]
     Active Substance: ETOPOSIDE
     Dosage: 150 MG FROM DAY 1 TO DAY 5 OF THE CYCLE
     Route: 042
     Dates: start: 200409
  11. FLUCONAZOLE. [Suspect]
     Active Substance: FLUCONAZOLE
     Indication: HEPATOSPLENIC CANDIDIASIS
     Route: 065
  12. ITRACONAZOLE. [Suspect]
     Active Substance: ITRACONAZOLE
     Indication: HEPATOSPLENIC CANDIDIASIS
     Route: 065
  13. CYTARABINE. [Concomitant]
     Active Substance: CYTARABINE
     Dosage: 2X150 MG FROM DAY 1 TO DAY 5 OF THE CYCLE
     Route: 041
     Dates: start: 200409
  14. ETOPOSIDE. [Concomitant]
     Active Substance: ETOPOSIDE
     Indication: ACUTE MYELOID LEUKAEMIA
     Dosage: 140 MG IN ONE HOUR INFUSION FROM DAY 1 TO DAY 5 OF THE CYCLE
     Route: 065
  15. HEPARIN [Concomitant]
     Active Substance: HEPARIN SODIUM
     Route: 065

REACTIONS (10)
  - Somnolence [Unknown]
  - Peripartum cardiomyopathy [Recovered/Resolved]
  - Nausea [Unknown]
  - Cardiomegaly [None]
  - Vomiting [Unknown]
  - Caesarean section [None]
  - Pleural effusion [None]
  - Cardiac failure [None]
  - Exposure during pregnancy [None]
  - Hepatosplenic candidiasis [None]

NARRATIVE: CASE EVENT DATE: 2011
